FAERS Safety Report 21731284 (Version 1)
Quarter: 2022Q4

REPORT INFORMATION
  Report Type: Spontaneous
  Country: PT (occurrence: PT)
  Receive Date: 20221215
  Receipt Date: 20221215
  Transmission Date: 20230113
  Serious: Yes (Death, Other)
  Sender: FDA-Public Use
  Company Number: PT-AMGEN-PRTSP2022211215

PATIENT

DRUGS (1)
  1. CARFILZOMIB [Suspect]
     Active Substance: CARFILZOMIB
     Indication: Plasma cell myeloma
     Dosage: UNK
     Route: 065

REACTIONS (8)
  - Death [Fatal]
  - Cardiac failure [Unknown]
  - Cytopenia [Unknown]
  - Thrombocytopenia [Unknown]
  - Pericardial effusion [Unknown]
  - Plasma cell myeloma [Unknown]
  - Hypertension [Unknown]
  - Infection [Unknown]
